FAERS Safety Report 25389181 (Version 2)
Quarter: 2025Q2

REPORT INFORMATION
  Report Type: Report from Study
  Country: US (occurrence: US)
  Receive Date: 20250603
  Receipt Date: 20250618
  Transmission Date: 20250716
  Serious: Yes (Other)
  Sender: UCB
  Company Number: US-UCBSA-2025031904

PATIENT
  Sex: Female

DRUGS (1)
  1. BIMEKIZUMAB [Suspect]
     Active Substance: BIMEKIZUMAB
     Indication: Psoriasis
     Dosage: 320 MILLIGRAM, EV 4 WEEKS (320 MG SUBQ EVERY 4 WEEKS PER THE 2 ML AUTOINJECTOR)
     Route: 058
     Dates: start: 20250416, end: 20250514

REACTIONS (7)
  - Immunodeficiency [Not Recovered/Not Resolved]
  - Acne [Unknown]
  - Oral herpes [Unknown]
  - Feeling of despair [Not Recovered/Not Resolved]
  - Vulvovaginal mycotic infection [Unknown]
  - Skin ulcer [Not Recovered/Not Resolved]
  - Folliculitis [Unknown]

NARRATIVE: CASE EVENT DATE: 20250101
